FAERS Safety Report 7579451-2 (Version None)
Quarter: 2011Q2

REPORT INFORMATION
  Report Type: 
  Country: None (occurrence: None)
  Receive Date: 20110629
  Receipt Date: 20110622
  Transmission Date: 20111010
  Serious: Yes (Other)
  Sender: FDA-Public Use
  Company Number: NL-AMGEN-NLDSP2011025646

PATIENT
  Age: 71 Year
  Sex: Female

DRUGS (12)
  1. SELOKEEN                           /00376902/ [Concomitant]
     Dosage: UNK
  2. HYPROMELLOSE [Concomitant]
     Dosage: UNK
  3. ACTONEL [Concomitant]
     Dosage: UNK
  4. LOSEC                              /00661201/ [Concomitant]
     Dosage: UNK
  5. ACETAMINOPHEN [Concomitant]
     Dosage: UNK
  6. CALCICHEW [Concomitant]
     Dosage: UNK
  7. MTX                                /00113801/ [Concomitant]
     Dosage: UNK
  8. PREDNISONE [Concomitant]
     Dosage: UNK
  9. ENBREL [Suspect]
     Indication: RHEUMATOID ARTHRITIS
     Dosage: 50 MG, WEEKLY
  10. CRESTOR [Concomitant]
     Dosage: UNK
  11. FUROSEMIDE [Concomitant]
     Dosage: UNK
  12. FOLIC ACID [Concomitant]
     Dosage: UNK

REACTIONS (2)
  - DRY EYE [None]
  - RHEUMATOID ARTHRITIS [None]
